FAERS Safety Report 7444540-X (Version None)
Quarter: 2011Q2

REPORT INFORMATION
  Report Type: 
  Country: None (occurrence: None)
  Receive Date: 20110429
  Receipt Date: 20110415
  Transmission Date: 20111010
  Serious: Yes (Hospitalization)
  Sender: FDA-Public Use
  Company Number: US-MYLANLABS-2011S1008042

PATIENT
  Age: 67 Year
  Sex: Female

DRUGS (5)
  1. PHENYTOIN [Suspect]
     Indication: EPILEPSY
     Route: 065
  2. CLONAZEPAM [Concomitant]
     Indication: ANXIETY
     Route: 065
  3. TOPIRAMATE [Concomitant]
     Indication: EPILEPSY
     Dosage: 100MG IN THE MORNING AND 200MG IN THE EVENING
     Route: 065
  4. QUETIAPINE [Concomitant]
     Indication: BIPOLAR DISORDER
     Route: 065
  5. OXCARBAZEPINE [Interacting]
     Indication: BIPOLAR DISORDER
     Dosage: INITIATED AT 150MG BID AND UPTITRATED
     Route: 065

REACTIONS (4)
  - DRUG INTERACTION [None]
  - ATAXIA [None]
  - DRUG LEVEL INCREASED [None]
  - TOXICITY TO VARIOUS AGENTS [None]
